FAERS Safety Report 20405676 (Version 1)
Quarter: 2022Q1

REPORT INFORMATION
  Report Type: Spontaneous
  Country: CN (occurrence: CN)
  Receive Date: 20220131
  Receipt Date: 20220131
  Transmission Date: 20220423
  Serious: Yes (Hospitalization)
  Sender: FDA-Public Use
  Company Number: CN-BAYER-2022A014947

PATIENT
  Age: 70 Year
  Sex: Female
  Weight: 41 kg

DRUGS (3)
  1. NEXAVAR [Suspect]
     Active Substance: SORAFENIB
     Indication: Hepatocellular carcinoma
     Dosage: 4 DF, BID
     Route: 048
     Dates: start: 20211101
  2. NEXAVAR [Suspect]
     Active Substance: SORAFENIB
     Indication: Hepatocellular carcinoma
     Dosage: 4 DF, BID
     Route: 048
     Dates: start: 20220110, end: 20220115
  3. ADALAT [Suspect]
     Active Substance: NIFEDIPINE
     Indication: Hypertension
     Dosage: 30 MG, QD
     Route: 048
     Dates: start: 20211101, end: 20220124

REACTIONS (9)
  - Abdominal distension [None]
  - Abdominal pain [None]
  - Decreased appetite [None]
  - Rash pruritic [Recovered/Resolved]
  - Skin fissures [Recovered/Resolved]
  - Peripheral swelling [None]
  - Rash [Recovered/Resolved]
  - Skin exfoliation [Recovered/Resolved]
  - Off label use [None]

NARRATIVE: CASE EVENT DATE: 20211101
